FAERS Safety Report 6655434-1 (Version None)
Quarter: 2010Q1

REPORT INFORMATION
  Report Type: 
  Country: None (occurrence: None)
  Receive Date: 20100329
  Receipt Date: 20100323
  Transmission Date: 20100710
  Serious: Yes (Death, Life-Threatening, Hospitalization, Other)
  Sender: FDA-Public Use
  Company Number: DE-CELGENEUS-062-21880-10011256

PATIENT
  Age: 44 Year
  Sex: Male

DRUGS (4)
  1. REVLIMID [Suspect]
     Route: 048
     Dates: start: 20091211, end: 20091231
  2. ASPIRIN [Concomitant]
     Indication: THROMBOSIS PROPHYLAXIS
     Route: 065
     Dates: start: 20091211, end: 20091231
  3. FORTECORTIN [Concomitant]
     Route: 065
  4. MORPHINE SULFATE [Concomitant]
     Indication: DRUG USE FOR UNKNOWN INDICATION
     Route: 065
     Dates: start: 20091202

REACTIONS (5)
  - ASTHENIA [None]
  - DEEP VEIN THROMBOSIS [None]
  - DISEASE PROGRESSION [None]
  - PULMONARY EMBOLISM [None]
  - RESPIRATORY FAILURE [None]
